FAERS Safety Report 9854912 (Version 1)
Quarter: 2013Q4

REPORT INFORMATION
  Report Type: Spontaneous
  Country: US (occurrence: None)
  Receive Date: 20131226
  Receipt Date: 20131226
  Transmission Date: 20140711
  Serious: Yes (Other)
  Sender: FDA-Public Use
  Company Number: PHEH2012US025301

PATIENT
  Age: 38 Year
  Sex: Male

DRUGS (2)
  1. EXFORGE (VALSARTAN, AMLODIPINE) UNKNOWN [Suspect]
     Indication: HYPERTENSION
     Route: 048
  2. MULTIVITAMINS (ASCORBIC ACID, ERGOCALCIFEROL, FOLIC ACID, NICOTINAMIDE, PANTHENOL, RETINOL, RIBOFLAVIN, THIAMINE HYDROCHLORIDE) [Concomitant]

REACTIONS (1)
  - Blood pressure increased [None]
